FAERS Safety Report 6259692-7 (Version None)
Quarter: 2009Q3

REPORT INFORMATION
  Report Type: 
  Country: None (occurrence: None)
  Receive Date: 20090706
  Receipt Date: 20090706
  Transmission Date: 20100115
  Serious: Yes (Other)
  Sender: FDA-Public Use
  Company Number: None

PATIENT
  Age: 61 Year
  Sex: Female
  Weight: 70.3075 kg

DRUGS (2)
  1. ARMOUR THYROID 90MGS. FOREST LAB [Suspect]
     Indication: AUTOIMMUNE THYROIDITIS
     Dosage: 180MGS. DAILY SL
     Route: 060
     Dates: start: 20090601, end: 20090705
  2. ARMOUR THYROID 15MGS. FOREST LAB [Suspect]
     Indication: AUTOIMMUNE THYROIDITIS
     Dosage: 15MGS. DAILY SL
     Route: 060
     Dates: start: 20090601, end: 20090705

REACTIONS (3)
  - HYPOTHYROIDISM [None]
  - MEMORY IMPAIRMENT [None]
  - PRODUCT QUALITY ISSUE [None]
